FAERS Safety Report 24329101 (Version 3)
Quarter: 2024Q4

REPORT INFORMATION
  Report Type: Spontaneous
  Country: US (occurrence: US)
  Receive Date: 20240917
  Receipt Date: 20241014
  Transmission Date: 20250114
  Serious: Yes (Hospitalization, Other)
  Sender: BAXTER
  Company Number: US-BAXTER-2024BAX024358

PATIENT
  Age: 67 Year
  Sex: Male
  Weight: 88.9 kg

DRUGS (15)
  1. CYCLOPHOSPHAMIDE [Suspect]
     Active Substance: CYCLOPHOSPHAMIDE
     Indication: Acute lymphocytic leukaemia
     Dosage: 150 MG/M2, CYCLIC (CYCLE 1, 3 SCHEDULE EVERY 12 HRS X 6 DOSES, DAYS 1-3), TOTAL DOSE ADMINISTERED: 3
     Route: 042
     Dates: start: 20240422
  2. CYCLOPHOSPHAMIDE [Suspect]
     Active Substance: CYCLOPHOSPHAMIDE
     Dosage: 150 MG/M2, CYCLIC, LAST ADMINISTERED
     Route: 042
     Dates: start: 20240620, end: 20240620
  3. MESNA [Suspect]
     Active Substance: MESNA
     Indication: Acute lymphocytic leukaemia
     Dosage: 300 MG/M2 CYCLIC, (CYCLE 1, 3, SCHEDULE DAYS 1-3), ONGOING
     Route: 042
     Dates: start: 20240422
  4. VINCRISTINE SULFATE [Suspect]
     Active Substance: VINCRISTINE SULFATE
     Indication: Acute lymphocytic leukaemia
     Dosage: 2 MG, CYCLE 1, 3, SCHEDULE DAY 1, DAY 8, INTRAVENOUS,TOTAL DOSE ADMINISTERED: 2 MG,ONGOING
     Route: 042
     Dates: start: 20240422
  5. VINCRISTINE SULFATE [Suspect]
     Active Substance: VINCRISTINE SULFATE
     Dosage: 2 MG, LAST ADMINISTERED
     Route: 042
     Dates: start: 20240624, end: 20240624
  6. RITUXIMAB [Suspect]
     Active Substance: RITUXIMAB
     Indication: Acute lymphocytic leukaemia
     Dosage: 375 MG/M2 CYCLIC, CYCLE 1-4, SCHEDULE DAY 2, DAY 8, ONGOING
     Route: 042
     Dates: start: 20240423
  7. METHOTREXATE SODIUM [Suspect]
     Active Substance: METHOTREXATE SODIUM
     Indication: Acute lymphocytic leukaemia
     Dosage: 12 MG CYCLIC, CYCLE 1-2, SCHEDULE DAY 2, DAY 8,
     Route: 037
     Dates: start: 20240423
  8. METHOTREXATE SODIUM [Suspect]
     Active Substance: METHOTREXATE SODIUM
     Dosage: 250 MG/M2 CYCLIC, CYCLE 2, 4, SCHEDULE DAY 1, ONGOING
     Route: 042
  9. CYTARABINE [Suspect]
     Active Substance: CYTARABINE
     Indication: Acute lymphocytic leukaemia
     Dosage: 100 MG CYCLIC ,CYCLE 1-2, SCHEDULE DAY 2, DAY 8,
     Route: 037
     Dates: start: 20240423
  10. CYTARABINE [Suspect]
     Active Substance: CYTARABINE
     Dosage: CYCLE 2, 4. DOSE 0.5 G/M2/DOSE. SCHEDULE EVERY 12 HRS X 4 DOSES, DAYS 2, 3,ONGOING
     Route: 042
  11. METHYLPREDNISOLONE SODIUM SUCCINATE [Suspect]
     Active Substance: METHYLPREDNISOLONE SODIUM SUCCINATE
     Indication: Acute lymphocytic leukaemia
     Dosage: 50 MG CYCLIC (CYCLE 2, 4, SCHEDULE EVERY 12 HRS X 6 DOSES, DAYS 1-3), ONGOING
     Route: 042
     Dates: start: 20240522
  12. INOTUZUMAB OZOGAMICIN [Suspect]
     Active Substance: INOTUZUMAB OZOGAMICIN
     Indication: Acute lymphocytic leukaemia
     Dosage: AT CYCLIC (CYCLE 1-4. SCHEDULE CYCLE 1: 0.6  MG/M2 D2, 0.3 MG/M2 D8. CYCLES 2-4: 0.3 MG/M2 D2, 0.3 M
     Route: 042
     Dates: start: 20240422
  13. INOTUZUMAB OZOGAMICIN [Suspect]
     Active Substance: INOTUZUMAB OZOGAMICIN
     Dosage: LAST ADMINISTERED, AT CYCLIC (CYCLE 1-4. SCHEDULE CYCLE 1: 0.6  MG/M2 D2, 0.3 MG/M2 D8. CYCLES 2-4:
     Route: 042
     Dates: start: 20240624, end: 20240624
  14. DEXAMETHASONE [Suspect]
     Active Substance: DEXAMETHASONE
     Indication: Acute lymphocytic leukaemia
     Dosage: 20 MG CYCLIC (CYCLE 1, 3, SCHEDULE DAYS 1-4, DAYS 11-14, ROUTE: IV AND PO), TOTAL DOSE ADMINISTERED:
     Route: 050
     Dates: start: 20240422
  15. DEXAMETHASONE [Suspect]
     Active Substance: DEXAMETHASONE
     Dosage: 20 MG CYCLIC (CYCLE 1, 3, SCHEDULE DAYS 1-4, DAYS 11-14, ROUTE: IV AND PO), LAST ADMINISTERED
     Route: 050
     Dates: start: 20240620, end: 20240620

REACTIONS (1)
  - Syncope [Recovered/Resolved]

NARRATIVE: CASE EVENT DATE: 20240627
